FAERS Safety Report 12209426 (Version 1)
Quarter: 2016Q1

REPORT INFORMATION
  Report Type: Report from Study
  Country: JP (occurrence: JP)
  Receive Date: 20160324
  Receipt Date: 20160324
  Transmission Date: 20160526
  Serious: Yes (Death)
  Sender: FDA-Public Use
  Company Number: JP-DSJP-DSJ-2016-100445

PATIENT

DRUGS (5)
  1. PARIET [Concomitant]
     Active Substance: RABEPRAZOLE SODIUM
     Dosage: 10MG/DAY
     Route: 048
  2. EDOXABAN [Suspect]
     Active Substance: EDOXABAN TOSYLATE
     Indication: ATRIAL FIBRILLATION
     Dosage: 30 MG, QD
     Route: 048
     Dates: start: 20151015, end: 20151217
  3. LOTRIGA [Concomitant]
     Active Substance: OMEGA-3-ACID ETHYL ESTERS
     Dosage: 2.0G/DAY
     Route: 048
  4. PRAZAXA [Concomitant]
     Active Substance: DABIGATRAN ETEXILATE MESYLATE
     Dosage: 220MG/DAY
     Route: 048
     Dates: end: 20151015
  5. AVAPRO [Concomitant]
     Active Substance: IRBESARTAN
     Dosage: 50MG/DAY
     Route: 048

REACTIONS (2)
  - Asthenia [Fatal]
  - Prothrombin time abnormal [Unknown]

NARRATIVE: CASE EVENT DATE: 20151216
